FAERS Safety Report 23548792 (Version 2)
Quarter: 2024Q2

REPORT INFORMATION
  Report Type: Report from Study
  Country: JP (occurrence: JP)
  Receive Date: 20240221
  Receipt Date: 20240411
  Transmission Date: 20240716
  Serious: Yes (Other)
  Sender: FDA-Public Use
  Company Number: JP-ARGENX-2023-ARGX-JP000774AA

PATIENT

DRUGS (8)
  1. VYVGART [Suspect]
     Active Substance: EFGARTIGIMOD ALFA-FCAB
     Indication: Myasthenia gravis
     Dosage: 800 MG, 1/WEEK
     Route: 042
     Dates: start: 20221028, end: 20221118
  2. PREDONINE [Concomitant]
     Active Substance: PREDNISOLONE
     Indication: Myasthenia gravis
     Dosage: 20 MG
     Route: 048
     Dates: start: 20210723
  3. DISTIGMINE BROMIDE [Concomitant]
     Active Substance: DISTIGMINE BROMIDE
     Indication: Myasthenia gravis
     Dosage: 10 MG
     Route: 048
     Dates: start: 20191220
  4. IPRAGLIFLOZIN L-PROLINE [Concomitant]
     Active Substance: IPRAGLIFLOZIN L-PROLINE
     Indication: Product used for unknown indication
     Dosage: 50 MG, DAILY, MORNING
     Route: 048
     Dates: start: 20221206
  5. TRULICITY [Concomitant]
     Active Substance: DULAGLUTIDE
     Indication: Product used for unknown indication
     Dosage: 0.75 MG
     Route: 058
     Dates: start: 20221206
  6. GLIMEPIRIDE [Concomitant]
     Active Substance: GLIMEPIRIDE
     Indication: Product used for unknown indication
     Dosage: 0.25 MG, DAILY, MORNING
     Route: 048
     Dates: start: 20221206
  7. NOVOLIN R [Concomitant]
     Active Substance: INSULIN HUMAN
     Indication: Product used for unknown indication
     Dosage: 8-15 UNITS, BID, MORNING/BEFORE NOON
     Route: 058
     Dates: start: 20221206
  8. Azosemide dsep [Concomitant]
     Indication: Product used for unknown indication
     Dosage: 15 MG, DAILY, MORNING
     Route: 048
     Dates: start: 20230120

REACTIONS (4)
  - Hypogammaglobulinaemia [Recovered/Resolved]
  - Palpitations [Recovering/Resolving]
  - Symptom recurrence [Recovering/Resolving]
  - Therapeutic product effect incomplete [Unknown]

NARRATIVE: CASE EVENT DATE: 20221028
